FAERS Safety Report 10587844 (Version 2)
Quarter: 2015Q1

REPORT INFORMATION
  Report Type: Spontaneous
  Country: US (occurrence: US)
  Receive Date: 20141117
  Receipt Date: 20150119
  Transmission Date: 20150720
  Serious: Yes (Death)
  Sender: FDA-Public Use
  Company Number: US-PFIZER INC-2014315217

PATIENT
  Age: 53 Year
  Sex: Male

DRUGS (8)
  1. DURAGESIC [Concomitant]
     Active Substance: FENTANYL
     Indication: PAIN
     Dosage: 25 MCG/HR PATCH 72 HOUR, 1 PATCH EVERY 3 DAYS
     Route: 062
  2. XANAX [Concomitant]
     Active Substance: ALPRAZOLAM
     Indication: ANXIETY
     Dosage: 0.5-1 TABLETS EVERY 4 HOURS AS NEEDED
     Route: 048
  3. LOVENOX [Concomitant]
     Active Substance: ENOXAPARIN SODIUM
     Dosage: 100 MG, 1X/DAY (100 MG/ML SYRINGE)
     Route: 058
  4. ZYPREXA [Concomitant]
     Active Substance: OLANZAPINE
     Indication: ANXIETY
  5. SUTENT [Suspect]
     Active Substance: SUNITINIB MALATE
     Indication: SARCOMA
     Dosage: 37.5 MG, DAILY
     Route: 048
     Dates: start: 20140918, end: 20141028
  6. DURAGESIC [Concomitant]
     Active Substance: FENTANYL
     Indication: DYSPNOEA
  7. ZYPREXA [Concomitant]
     Active Substance: OLANZAPINE
     Indication: SOMNOLENCE
     Dosage: 2.5 MG (1 TABLET), AS NEEDED EVERY BEDTIME
     Route: 048
  8. DILAUDID [Concomitant]
     Active Substance: HYDROMORPHONE HYDROCHLORIDE
     Indication: PAIN
     Dosage: 0.5-1 TABLET, AS NEEDED

REACTIONS (3)
  - Sarcoma [Fatal]
  - Disease progression [Fatal]
  - Product use issue [Unknown]
